FAERS Safety Report 12154894 (Version 1)
Quarter: 2016Q1

REPORT INFORMATION
  Report Type: Spontaneous
  Country: US (occurrence: None)
  Receive Date: 20160304
  Receipt Date: 20160304
  Transmission Date: 20160526
  Serious: No
  Sender: FDA-Public Use
  Company Number: None

PATIENT
  Age: 58 Year
  Sex: Female

DRUGS (2)
  1. BACLOFEN 10MG IVAX PHARMACEUTICALS [Suspect]
     Active Substance: BACLOFEN
     Indication: MUSCULOSKELETAL STIFFNESS
     Dosage: 10MG 1 TAB TID ORAL
     Route: 048
     Dates: start: 20160105, end: 20160229
  2. TECFIDERA [Concomitant]
     Active Substance: DIMETHYL FUMARATE

REACTIONS (2)
  - Drug ineffective [None]
  - Swelling face [None]

NARRATIVE: CASE EVENT DATE: 20160229
